FAERS Safety Report 23412375 (Version 4)
Quarter: 2024Q1

REPORT INFORMATION
  Report Type: Spontaneous
  Country: GB (occurrence: None)
  Receive Date: 20240117
  Receipt Date: 20240315
  Transmission Date: 20240410
  Serious: Yes (Hospitalization)
  Sender: FDA-Public Use
  Company Number: GB-ROCHE-3481603

PATIENT
  Age: 96 Year
  Sex: Female

DRUGS (5)
  1. TOCILIZUMAB [Suspect]
     Active Substance: TOCILIZUMAB
     Indication: Rheumatoid arthritis
     Route: 058
     Dates: start: 202209
  2. TOCILIZUMAB [Suspect]
     Active Substance: TOCILIZUMAB
     Route: 058
  3. TOCILIZUMAB [Suspect]
     Active Substance: TOCILIZUMAB
     Route: 058
  4. BISOPROLOL [Concomitant]
     Active Substance: BISOPROLOL\BISOPROLOL FUMARATE
  5. GABAPENTIN [Concomitant]
     Active Substance: GABAPENTIN

REACTIONS (8)
  - Renal disorder [Unknown]
  - Pain in extremity [Unknown]
  - Gait disturbance [Unknown]
  - Off label use [Unknown]
  - Herpes zoster [Unknown]
  - Nerve injury [Unknown]
  - Pain [Unknown]
  - Renal impairment [Unknown]
